FAERS Safety Report 22600805 (Version 2)
Quarter: 2023Q2

REPORT INFORMATION
  Report Type: Spontaneous
  Country: US (occurrence: US)
  Receive Date: 20230614
  Receipt Date: 20230617
  Transmission Date: 20230721
  Serious: Yes (Hospitalization, Other)
  Sender: FDA-Public Use
  Company Number: US-SUN PHARMACEUTICAL INDUSTRIES LTD-2023R1-393359

PATIENT
  Age: 58 Year
  Sex: Female

DRUGS (1)
  1. ACETAMINOPHEN [Suspect]
     Active Substance: ACETAMINOPHEN
     Indication: Abdominal pain
     Dosage: UNK
     Route: 065

REACTIONS (7)
  - Toxicity to various agents [Unknown]
  - Encephalopathy [Recovering/Resolving]
  - Ascites [Unknown]
  - Overdose [Unknown]
  - Hypertransaminasaemia [Not Recovered/Not Resolved]
  - International normalised ratio increased [Unknown]
  - Blood creatinine increased [Unknown]
